FAERS Safety Report 9264797 (Version 1)
Quarter: 2013Q2

REPORT INFORMATION
  Report Type: Spontaneous
  Country: IT (occurrence: None)
  Receive Date: 20130429
  Receipt Date: 20130429
  Transmission Date: 20140414
  Serious: Yes (Hospitalization)
  Sender: FDA-Public Use
  Company Number: AUR-APL-2013-03486

PATIENT
  Age: 55 Year
  Sex: Female

DRUGS (1)
  1. CEFTRIAXONE (CEFTRIAXONE) [Suspect]
     Indication: PNEUMONITIS
     Route: 030
     Dates: start: 20130405, end: 20130405

REACTIONS (4)
  - Dyspnoea [None]
  - Face oedema [None]
  - Paraesthesia [None]
  - Paraesthesia [None]
